FAERS Safety Report 6304227-3 (Version None)
Quarter: 2009Q3

REPORT INFORMATION
  Report Type: 
  Country: None (occurrence: None)
  Receive Date: 20090811
  Receipt Date: 20090730
  Transmission Date: 20100115
  Serious: Yes (Other)
  Sender: FDA-Public Use
  Company Number: US-JNJFOC-20090601405

PATIENT
  Sex: Male
  Weight: 73.03 kg

DRUGS (22)
  1. REMICADE [Suspect]
     Indication: RHEUMATOID ARTHRITIS
     Dosage: DOSE ALSO REPORTED AS 7.5 MG/KG; RECEIVED 31 DOSES
     Route: 042
  2. CELEBREX [Concomitant]
     Route: 048
  3. FEXOFENADINE HCL [Concomitant]
     Route: 048
  4. HYDROXYCHLOROQUINE SULFATE [Concomitant]
     Route: 048
  5. NASONEX [Concomitant]
     Route: 045
  6. ZETIA [Concomitant]
     Route: 048
  7. PREDNISONE [Concomitant]
     Indication: PREMEDICATION
     Dosage: X3 DAYS INCLUDES DAY OF INFLIXIMAB
  8. FOLIC ACID [Concomitant]
     Route: 048
  9. SOLU-CORTEF [Concomitant]
     Indication: PREMEDICATION
     Dosage: PRIOR TO INFLIXIMAB
     Route: 042
  10. DIPHENHYDRAMINE HCL [Concomitant]
     Indication: PREMEDICATION
     Dosage: BEFORE INFLIXIMAB
     Route: 042
  11. NEXIUM [Concomitant]
     Route: 048
  12. ALLEGRA [Concomitant]
     Route: 048
  13. PSEUDOEPHEDRINE HCL [Concomitant]
     Route: 048
  14. WELLBID-D [Concomitant]
     Dosage: DOSE 40-600 EXTENDED RELEASE
     Route: 048
  15. METHOTREXATE SODIUM [Concomitant]
     Route: 058
  16. TRIAMTERENE AND HYDROCHLOROTHIAZIDE [Concomitant]
     Indication: SWELLING
     Dosage: DOSE 37.5-25
     Route: 048
  17. PREDNISONE [Concomitant]
     Dosage: 1-2 TABS AS DIRECTED
     Route: 048
  18. PREDNISONE [Concomitant]
     Route: 048
  19. AMBIEN [Concomitant]
     Route: 048
  20. TAPAZOLE [Concomitant]
     Route: 048
  21. NYSTATIN [Concomitant]
     Route: 048
  22. ULTRAM ER [Concomitant]
     Route: 048

REACTIONS (15)
  - DECREASED APPETITE [None]
  - DEPRESSION [None]
  - DISSEMINATED CRYPTOCOCCOSIS [None]
  - DYSPEPSIA [None]
  - DYSPNOEA EXERTIONAL [None]
  - HAEMATURIA [None]
  - HAEMORRHOIDS [None]
  - INSOMNIA [None]
  - ONYCHOMYCOSIS [None]
  - ORAL CANDIDIASIS [None]
  - POST PROCEDURAL COMPLICATION [None]
  - POSTOPERATIVE WOUND INFECTION [None]
  - PSORIASIS [None]
  - TENOSYNOVITIS [None]
  - VISUAL ACUITY REDUCED [None]
